FAERS Safety Report 25654971 (Version 1)
Quarter: 2025Q3

REPORT INFORMATION
  Report Type: Spontaneous
  Country: EU (occurrence: EU)
  Receive Date: 20250807
  Receipt Date: 20250807
  Transmission Date: 20251020
  Serious: Yes (Hospitalization)
  Sender: ADIENNE PHARMA & BIOTECH
  Company Number: None

PATIENT
  Age: 53 Year
  Sex: Female

DRUGS (12)
  1. CYCLOPHOSPHAMIDE [Suspect]
     Active Substance: CYCLOPHOSPHAMIDE
     Indication: Stem cell transplant
     Route: 042
     Dates: start: 20250412, end: 20250413
  2. THIOTEPA [Suspect]
     Active Substance: THIOTEPA
     Indication: Stem cell transplant
     Route: 042
     Dates: start: 20250403, end: 20250403
  3. FLUDARABINE PHOSPHATE [Suspect]
     Active Substance: FLUDARABINE PHOSPHATE
     Indication: Stem cell transplant
     Route: 042
     Dates: start: 20250404, end: 20250407
  4. BUSULFAN [Concomitant]
     Active Substance: BUSULFAN
  5. VALACYCLOVIR HYDROCHLORIDE [Concomitant]
     Active Substance: VALACYCLOVIR HYDROCHLORIDE
  6. CYCLOSPORINE [Concomitant]
     Active Substance: CYCLOSPORINE
  7. MYCOPHENOLATE MOFETIL [Concomitant]
     Active Substance: MYCOPHENOLATE MOFETIL
  8. PREDNISONE [Concomitant]
     Active Substance: PREDNISONE
  9. PENICILLIN V [Concomitant]
     Active Substance: PENICILLIN V
  10. LETERMOVIR [Concomitant]
     Active Substance: LETERMOVIR
  11. LEUCOVORIN CALCIUM [Concomitant]
     Active Substance: LEUCOVORIN CALCIUM
  12. URSODIOL [Concomitant]
     Active Substance: URSODIOL

REACTIONS (1)
  - Heart failure with reduced ejection fraction [Recovered/Resolved]

NARRATIVE: CASE EVENT DATE: 20250417
